FAERS Safety Report 12551171 (Version 1)
Quarter: 2016Q3

REPORT INFORMATION
  Report Type: Spontaneous
  Country: US (occurrence: US)
  Receive Date: 20160713
  Receipt Date: 20160713
  Transmission Date: 20161109
  Serious: No
  Sender: FDA-Public Use
  Company Number: US-BEH-2016070102

PATIENT
  Sex: Female
  Weight: 67.12 kg

DRUGS (23)
  1. ASPIRIN (E.C.) [Concomitant]
     Active Substance: ASPIRIN
  2. TRAZODONE [Concomitant]
     Active Substance: TRAZODONE HYDROCHLORIDE
  3. METANX [Concomitant]
     Active Substance: LEVOMEFOLATE CALCIUM\METHYLCOBALAMIN\PYRIDOXAL PHOSPHATE ANHYDROUS
  4. HIZENTRA [Suspect]
     Active Substance: HUMAN IMMUNOGLOBULIN G
     Indication: IMMUNODEFICIENCY COMMON VARIABLE
     Dosage: 4 G, QW
     Route: 058
  5. MIRALAX [Concomitant]
     Active Substance: POLYETHYLENE GLYCOL 3350
  6. WELLBUTRIN [Concomitant]
     Active Substance: BUPROPION HYDROCHLORIDE
  7. DIPHENHYDRAMINE                    /00000402/ [Concomitant]
     Active Substance: DIPHENHYDRAMINE
  8. EPIPEN [Concomitant]
     Active Substance: EPINEPHRINE
  9. GABAPENTIN. [Concomitant]
     Active Substance: GABAPENTIN
  10. HIZENTRA [Suspect]
     Active Substance: HUMAN IMMUNOGLOBULIN G
     Indication: HYPOGAMMAGLOBULINAEMIA
  11. KRILL OIL [Concomitant]
     Active Substance: DIETARY SUPPLEMENT
  12. CITRACAL + D                       /01438101/ [Concomitant]
  13. NEXIUM [Concomitant]
     Active Substance: ESOMEPRAZOLE MAGNESIUM
  14. ETODOLAC. [Concomitant]
     Active Substance: ETODOLAC
  15. RISPERDAL [Concomitant]
     Active Substance: RISPERIDONE
  16. LIDOCAINE. [Concomitant]
     Active Substance: LIDOCAINE
  17. XANAX [Concomitant]
     Active Substance: ALPRAZOLAM
  18. FEXOFENADINE [Concomitant]
     Active Substance: FEXOFENADINE\FEXOFENADINE HYDROCHLORIDE
  19. NORCO [Concomitant]
     Active Substance: ACETAMINOPHEN\HYDROCODONE BITARTRATE
  20. ACETAMINOPHEN. [Concomitant]
     Active Substance: ACETAMINOPHEN
  21. CENTRUM SILVER                     /02363801/ [Concomitant]
     Active Substance: MINERALS\VITAMINS
  22. TRAVATAN Z [Concomitant]
     Active Substance: TRAVOPROST
  23. XOPENEX [Concomitant]
     Active Substance: LEVALBUTEROL HYDROCHLORIDE

REACTIONS (1)
  - Nail infection [Unknown]
